FAERS Safety Report 7355006-X (Version None)
Quarter: 2011Q1

REPORT INFORMATION
  Report Type: 
  Country: None (occurrence: None)
  Receive Date: 20110316
  Receipt Date: 20100928
  Transmission Date: 20110831
  Serious: Yes (Hospitalization)
  Sender: FDA-Public Use
  Company Number: US-BAYER-201010673NA

PATIENT
  Sex: Female
  Weight: 59 kg

DRUGS (4)
  1. DARVOCET-N 100 [Concomitant]
     Dosage: UNK
     Dates: start: 20071001
  2. ZANTAC [Concomitant]
     Dosage: UNK
     Dates: start: 20071001
  3. YASMIN [Suspect]
     Indication: CONTRACEPTION
     Dosage: 1 DF (DAILY DOSE), QD, ORAL
     Route: 048
     Dates: start: 20070901, end: 20071016
  4. YAZ [Suspect]
     Indication: ACNE
     Dosage: UNK
     Dates: start: 20070919, end: 20071116

REACTIONS (6)
  - PAIN [None]
  - PULMONARY INFARCTION [None]
  - PULMONARY EMBOLISM [None]
  - HYPOAESTHESIA [None]
  - CHEST PAIN [None]
  - SWELLING [None]
